FAERS Safety Report 17066865 (Version 1)
Quarter: 2019Q4

REPORT INFORMATION
  Report Type: Spontaneous
  Country: IT (occurrence: IT)
  Receive Date: 20191122
  Receipt Date: 20191122
  Transmission Date: 20200122
  Serious: Yes (Other)
  Sender: FDA-Public Use
  Company Number: IT-PFIZER INC-2019502219

PATIENT
  Age: 27 Year
  Sex: Male

DRUGS (4)
  1. VINBLASTINA TEVA [Suspect]
     Active Substance: VINBLASTINE
     Dosage: 11.41 MG, CYCLIC
     Route: 042
     Dates: start: 20190924
  2. ADRIBLASTINA [Suspect]
     Active Substance: DOXORUBICIN HYDROCHLORIDE
     Indication: HODGKIN^S DISEASE
     Dosage: 47.08 MG, CYCLIC
     Route: 042
     Dates: start: 20190924
  3. BLEOPRIM [Suspect]
     Active Substance: BLEOMYCIN SULFATE
     Dosage: 18.62 MG, CYCLIC
     Route: 042
     Dates: start: 20190924
  4. DACARBAZINA LIPOMED [Suspect]
     Active Substance: DACARBAZINE
     Dosage: 712.1 MG, CYCLIC
     Route: 042
     Dates: start: 20190924

REACTIONS (2)
  - Hypertransaminasaemia [Recovered/Resolved]
  - Ileus paralytic [Recovered/Resolved]

NARRATIVE: CASE EVENT DATE: 20190924
